FAERS Safety Report 7389099-0 (Version None)
Quarter: 2011Q1

REPORT INFORMATION
  Report Type: 
  Country: None (occurrence: None)
  Receive Date: 20110329
  Receipt Date: 20110329
  Transmission Date: 20110831
  Serious: Yes (Hospitalization)
  Sender: FDA-Public Use
  Company Number: None

PATIENT
  Age: 62 Year
  Sex: Female
  Weight: 149.687 kg

DRUGS (2)
  1. COREG [Suspect]
  2. LISINOPRIL [Suspect]

REACTIONS (8)
  - VOMITING [None]
  - DIZZINESS [None]
  - VERTIGO [None]
  - GAIT DISTURBANCE [None]
  - CHEST PAIN [None]
  - VITREOUS FLOATERS [None]
  - NAUSEA [None]
  - BLOOD PRESSURE [None]
